FAERS Safety Report 8068215-1 (Version None)
Quarter: 2012Q1

REPORT INFORMATION
  Report Type: 
  Country: None (occurrence: None)
  Receive Date: 20120124
  Receipt Date: 20111003
  Transmission Date: 20120608
  Serious: No
  Sender: FDA-Public Use
  Company Number: US-AMGEN-USASP2011036847

PATIENT
  Age: 67 Year
  Sex: Female
  Weight: 71.655 kg

DRUGS (11)
  1. ASPIRIN [Concomitant]
  2. PROLIA [Suspect]
     Indication: OSTEOPOROSIS POSTMENOPAUSAL
     Dosage: 60 MG, Q6MO
     Dates: start: 20110606
  3. OMEPRAZOLE [Concomitant]
  4. PRAVASTATIN SODIUM [Concomitant]
  5. GLUCOSAMINE SULPHATE [Concomitant]
     Dosage: UNK UNK, BID
  6. CALCIUM [Concomitant]
  7. HYDROCHLOROTHIAZIDE [Concomitant]
  8. MELOXICAM [Concomitant]
     Dosage: 15 MG, QD
  9. COREG [Concomitant]
  10. EXFORGE [Concomitant]
  11. LEVOTHYROXINE SODIUM [Concomitant]
     Dosage: 112 MUG, QD

REACTIONS (12)
  - HEADACHE [None]
  - FATIGUE [None]
  - PAIN IN EXTREMITY [None]
  - BACK PAIN [None]
  - TEMPERATURE INTOLERANCE [None]
  - OEDEMA PERIPHERAL [None]
  - URETHRITIS NONINFECTIVE [None]
  - DRY SKIN [None]
  - CYSTITIS [None]
  - NASAL CONGESTION [None]
  - ABDOMINAL PAIN [None]
  - HAIR TEXTURE ABNORMAL [None]
